FAERS Safety Report 7813232-7 (Version None)
Quarter: 2011Q4

REPORT INFORMATION
  Report Type: 
  Country: None (occurrence: None)
  Receive Date: 20111013
  Receipt Date: 20110928
  Transmission Date: 20120403
  Serious: Yes (Other)
  Sender: FDA-Public Use
  Company Number: US-GILEAD-2011-0044427

PATIENT

DRUGS (3)
  1. KALETRA [Suspect]
     Indication: HIV INFECTION
     Dosage: 4 UNK, UNK
     Route: 048
     Dates: start: 20110115
  2. EMTRICITABINE/TENOFOVIR DISOPROXIL FUMARATE [Suspect]
     Indication: HIV INFECTION
     Dosage: 1 DF, UNK
     Route: 048
     Dates: start: 20110115
  3. RETROVIR [Suspect]
     Indication: HIV INFECTION
     Dosage: 600 MG, UNK
     Route: 048
     Dates: start: 20110115

REACTIONS (2)
  - STILLBIRTH [None]
  - PREGNANCY [None]
